FAERS Safety Report 22628816 (Version 1)
Quarter: 2023Q2

REPORT INFORMATION
  Report Type: Spontaneous
  Country: US (occurrence: US)
  Receive Date: 20230622
  Receipt Date: 20230622
  Transmission Date: 20230722
  Serious: No
  Sender: FDA-Public Use
  Company Number: US-drreddys-SPO/USA/23/0166050

PATIENT
  Age: 20 Year

DRUGS (2)
  1. ZENATANE [Suspect]
     Active Substance: ISOTRETINOIN
     Indication: Product used for unknown indication
     Dosage: RMA ISSUE DATE 11 APRIL 2023 11:16:42 AM
  2. ZENATANE [Suspect]
     Active Substance: ISOTRETINOIN
     Dosage: RMA ISSUE DATE 12 MAY 2022 03:08:51 PM, 10 JUNE 2022 09:17:56 AM, 29 JUNE 2022 01:46:07 PM, 26 JULY

REACTIONS (1)
  - Adverse drug reaction [Unknown]
